FAERS Safety Report 5132663-X (Version None)
Quarter: 2006Q4

REPORT INFORMATION
  Report Type: 
  Country: None (occurrence: None)
  Receive Date: 20061017
  Receipt Date: 20060928
  Transmission Date: 20070319
  Serious: Yes (Hospitalization)
  Sender: FDA-Public Use
  Company Number: 230886

PATIENT
  Age: 62 Year
  Sex: Female

DRUGS (4)
  1. HERCEPTIN [Suspect]
     Indication: BREAST CANCER METASTATIC
     Dosage: 4 MG/KG, Q2W, INTRAVENOUS
     Route: 042
     Dates: start: 20060804
  2. ZOMETA [Concomitant]
  3. METHYCOBAL (MECOBALAMIN) [Concomitant]
  4. MORPHINE [Concomitant]

REACTIONS (1)
  - DYSPHONIA [None]
